FAERS Safety Report 12830939 (Version 1)
Quarter: 2016Q4

REPORT INFORMATION
  Report Type: Report from Study
  Country: US (occurrence: US)
  Receive Date: 20161007
  Receipt Date: 20161007
  Transmission Date: 20170207
  Serious: Yes (Hospitalization)
  Sender: FDA-Public Use
  Company Number: US-PFIZER INC-2016460961

PATIENT
  Age: 65 Year
  Sex: Female

DRUGS (4)
  1. WARFARIN [Concomitant]
     Active Substance: WARFARIN
     Dosage: UNK
     Dates: start: 20130309, end: 20160819
  2. IBUPROFEN. [Suspect]
     Active Substance: IBUPROFEN
     Indication: MYALGIA
     Dosage: 200-400MG, QD, PRN
     Route: 048
     Dates: start: 20160801, end: 20160819
  3. EPACADOSTAT [Suspect]
     Active Substance: EPACADOSTAT
     Indication: OVARIAN CANCER
     Dosage: 25 MG, 2X/DAY
     Route: 048
     Dates: start: 20160307, end: 20160819
  4. NIVOLUMAB [Suspect]
     Active Substance: NIVOLUMAB
     Indication: OVARIAN CANCER
     Dosage: 240 MG, Q14D
     Route: 042
     Dates: start: 20160307

REACTIONS (1)
  - Duodenal perforation [Recovered/Resolved]

NARRATIVE: CASE EVENT DATE: 20160818
